FAERS Safety Report 4376520-5 (Version None)
Quarter: 2004Q2

REPORT INFORMATION
  Report Type: 
  Country: None (occurrence: None)
  Receive Date: 20040614
  Receipt Date: 20040604
  Transmission Date: 20050107
  Serious: Yes (Disabling)
  Sender: FDA-Public Use
  Company Number: ES-BRISTOL-MYERS SQUIBB COMPANY-12605689

PATIENT
  Age: 38 Year
  Sex: Female

DRUGS (3)
  1. SUSTIVA [Suspect]
     Indication: HIV INFECTION
     Route: 048
     Dates: start: 20030130, end: 20030219
  2. ZERIT [Concomitant]
  3. VIREAD [Concomitant]

REACTIONS (2)
  - MOUTH ULCERATION [None]
  - RASH GENERALISED [None]
